FAERS Safety Report 7118297-6 (Version None)
Quarter: 2010Q4

REPORT INFORMATION
  Report Type: 
  Country: None (occurrence: None)
  Receive Date: 20101123
  Receipt Date: 20101112
  Transmission Date: 20110411
  Serious: Yes (Other)
  Sender: FDA-Public Use
  Company Number: JP-JNJFOC-20100908198

PATIENT
  Age: 73 Year
  Sex: Male

DRUGS (5)
  1. ITRIZOLE [Suspect]
     Indication: ONYCHOMYCOSIS
     Route: 048
  2. ITRIZOLE [Suspect]
     Route: 048
  3. NIFEDIPINE [Suspect]
     Indication: ILL-DEFINED DISORDER
     Route: 048
  4. SIMVASTATIN [Concomitant]
     Indication: ILL-DEFINED DISORDER
     Route: 048
  5. DOXAZOSIN MESYLATE [Concomitant]
     Route: 065

REACTIONS (2)
  - OEDEMA [None]
  - WEIGHT INCREASED [None]
